FAERS Safety Report 7432562-4 (Version None)
Quarter: 2011Q2

REPORT INFORMATION
  Report Type: 
  Country: None (occurrence: None)
  Receive Date: 20110422
  Receipt Date: 20110411
  Transmission Date: 20111010
  Serious: No
  Sender: FDA-Public Use
  Company Number: B0713234A

PATIENT
  Age: 8 Year

DRUGS (1)
  1. RELENZA [Suspect]
     Dosage: 4IUAX PER DAY
     Route: 055

REACTIONS (1)
  - OVERDOSE [None]
